FAERS Safety Report 12986434 (Version 1)
Quarter: 2016Q4

REPORT INFORMATION
  Report Type: Other
  Country: CA (occurrence: CA)
  Receive Date: 20161130
  Receipt Date: 20161130
  Transmission Date: 20170207
  Serious: Yes (Other)
  Sender: FDA-Public Use
  Company Number: CA-APOTEX-2016AP014891

PATIENT
  Sex: Male

DRUGS (3)
  1. APO-HYDROMORPHONE [Suspect]
     Active Substance: HYDROMORPHONE
     Indication: PAIN
     Route: 065
  2. APO-FENTANYL MATRIX [Suspect]
     Active Substance: FENTANYL
     Indication: PAIN
     Route: 065
  3. APO-OXYCODONE CR [Suspect]
     Active Substance: OXYCODONE HYDROCHLORIDE
     Indication: PAIN
     Route: 065

REACTIONS (6)
  - Symptom masked [Recovered/Resolved]
  - Psychomotor hyperactivity [Recovered/Resolved]
  - Feeling abnormal [Recovered/Resolved]
  - Euphoric mood [Recovered/Resolved]
  - Drug dependence [Recovered/Resolved]
  - Psychomotor skills impaired [Recovered/Resolved]
